FAERS Safety Report 9717219 (Version 1)
Quarter: 2013Q4

REPORT INFORMATION
  Report Type: Spontaneous
  Country: US (occurrence: US)
  Receive Date: 20131127
  Receipt Date: 20131127
  Transmission Date: 20140711
  Serious: Yes (Other)
  Sender: FDA-Public Use
  Company Number: US-CELGENEUS-163-50794-13113203

PATIENT
  Sex: 0

DRUGS (4)
  1. VIDAZA [Suspect]
     Indication: ACUTE MYELOID LEUKAEMIA
     Dosage: 75 MG/MQ
  2. VIDAZA [Suspect]
     Indication: MYELODYSPLASTIC SYNDROME
  3. MIDOSTAURIN [Suspect]
     Indication: ACUTE MYELOID LEUKAEMIA
     Dosage: 50 MILLIGRAM
     Route: 048
  4. MIDOSTAURIN [Suspect]
     Indication: MYELODYSPLASTIC SYNDROME
     Dosage: 100 MILLIGRAM
     Route: 048

REACTIONS (14)
  - Neutropenia [Unknown]
  - Anaemia [Unknown]
  - Thrombocytopenia [Unknown]
  - Infection [Unknown]
  - Hypokalaemia [Unknown]
  - Hyponatraemia [Unknown]
  - Ejection fraction decreased [Unknown]
  - Hyperuricaemia [Unknown]
  - Hyperglycaemia [Unknown]
  - Nausea [Unknown]
  - Vomiting [Unknown]
  - Electrocardiogram QT prolonged [Unknown]
  - Hyperbilirubinaemia [Unknown]
  - Aspartate aminotransferase increased [Unknown]
